FAERS Safety Report 24079370 (Version 1)
Quarter: 2024Q3

REPORT INFORMATION
  Report Type: Spontaneous
  Country: US (occurrence: None)
  Receive Date: 20240710
  Receipt Date: 20240710
  Transmission Date: 20241017
  Serious: Yes (Other)
  Sender: Public
  Company Number: None

PATIENT
  Age: 57 Year
  Sex: Female

DRUGS (1)
  1. SOFOSBUVIR\VELPATASVIR [Suspect]
     Active Substance: SOFOSBUVIR\VELPATASVIR
     Indication: Chronic hepatitis C
     Dosage: 1 TABLET QD PO
     Route: 048
     Dates: start: 20240418, end: 20240421

REACTIONS (2)
  - Dizziness [None]
  - Syncope [None]

NARRATIVE: CASE EVENT DATE: 20240421
